FAERS Safety Report 12607622 (Version 1)
Quarter: 2016Q3

REPORT INFORMATION
  Report Type: Spontaneous
  Country: US (occurrence: US)
  Receive Date: 20160729
  Receipt Date: 20160729
  Transmission Date: 20161109
  Serious: No
  Sender: FDA-Public Use
  Company Number: US-BAYER-2016-141068

PATIENT
  Age: 55 Year
  Sex: Female

DRUGS (3)
  1. CLIMARA [Suspect]
     Active Substance: ESTRADIOL
     Indication: OESTRADIOL DECREASED
     Dosage: 1 DF, OW
     Route: 062
     Dates: start: 20160718
  2. CLIMARA [Suspect]
     Active Substance: ESTRADIOL
     Indication: OESTRADIOL DECREASED
     Dosage: 1 DF, OW
     Route: 062
     Dates: end: 201607
  3. CLIMARA [Suspect]
     Active Substance: ESTRADIOL
     Indication: OESTRADIOL DECREASED
     Dosage: 1 DF, OW
     Route: 062
     Dates: start: 201605, end: 201607

REACTIONS (5)
  - Product quality issue [None]
  - Intentional product misuse [None]
  - Product adhesion issue [None]
  - Frustration tolerance decreased [None]
  - Malaise [None]
